FAERS Safety Report 9234504 (Version 1)
Quarter: 2013Q2

REPORT INFORMATION
  Report Type: Spontaneous
  Country: US (occurrence: US)
  Receive Date: 20130416
  Receipt Date: 20130416
  Transmission Date: 20140414
  Serious: No
  Sender: FDA-Public Use
  Company Number: US-BANPHARM-20120264

PATIENT
  Age: 77 Year
  Sex: Male
  Weight: 73.48 kg

DRUGS (2)
  1. ALEVE LIQUID GELS 220 MG [Suspect]
     Dosage: 1DF, BID,
     Route: 048
     Dates: start: 20120928, end: 20121014
  2. FLOVENT [Concomitant]

REACTIONS (2)
  - Joint swelling [Recovered/Resolved]
  - Incorrect drug administration duration [Unknown]
